FAERS Safety Report 6712347-4 (Version None)
Quarter: 2010Q2

REPORT INFORMATION
  Report Type: 
  Country: None (occurrence: None)
  Receive Date: 20100505
  Receipt Date: 20100423
  Transmission Date: 20101027
  Serious: Yes (Hospitalization)
  Sender: FDA-Public Use
  Company Number: ES-ELI_LILLY_AND_COMPANY-ES201004006697

PATIENT
  Sex: Female
  Weight: 50 kg

DRUGS (11)
  1. FORTEO [Suspect]
     Indication: OSTEOPOROSIS
     Dosage: 20 UG, DAILY (1/D)
     Route: 058
     Dates: start: 20090726
  2. ACOVIL [Concomitant]
     Indication: HYPERTENSION
     Dosage: 10 MG, UNKNOWN
     Route: 048
     Dates: start: 20100423
  3. SEGURIL [Concomitant]
     Indication: HYPERTENSION
     Dosage: 40 MG, DAILY (1/D)
     Route: 048
  4. NORVASC [Concomitant]
     Indication: HYPERTENSION
     Dosage: UNK, 2/D
     Route: 048
     Dates: end: 20100401
  5. PANTECTA [Concomitant]
     Dosage: 40 MG, DAILY (1/D)
     Route: 048
  6. NOVONORM [Concomitant]
     Indication: DIABETES MELLITUS
     Dosage: 2 MG, EACH MORNING
     Route: 048
     Dates: start: 20100423
  7. LANTUS [Concomitant]
     Indication: DIABETES MELLITUS
     Dosage: UNK, UNKNOWN
     Route: 058
  8. LEVEMIR [Concomitant]
     Indication: DIABETES MELLITUS
     Dosage: 14 IU, DAILY (1/D)
     Route: 058
     Dates: start: 20100423
  9. ACETAMINOPHEN [Concomitant]
     Indication: PAIN
     Dosage: 1 G, AS NEEDED
     Route: 048
  10. ZARATOR [Concomitant]
     Indication: BLOOD CHOLESTEROL INCREASED
     Dosage: UNK, DAILY (1/D)
     Route: 048
  11. IDEOS                              /00944201/ [Concomitant]
     Indication: OSTEOPOROSIS
     Dosage: UNK, DAILY (1/D)
     Route: 048

REACTIONS (1)
  - PULMONARY OEDEMA [None]
